FAERS Safety Report 8590301-8 (Version None)
Quarter: 2012Q3

REPORT INFORMATION
  Report Type: 
  Country: None (occurrence: None)
  Receive Date: 20120813
  Receipt Date: 20120806
  Transmission Date: 20120928
  Serious: Yes (Hospitalization)
  Sender: FDA-Public Use
  Company Number: JP-GLAXOSMITHKLINE-B0813627A

PATIENT
  Age: 70 Year
  Sex: Female
  Weight: 45 kg

DRUGS (4)
  1. HYCAMTIN [Suspect]
     Indication: OVARIAN CANCER RECURRENT
     Dosage: 1.5MG PER DAY
     Route: 042
     Dates: start: 20120604, end: 20120608
  2. DECADRON PHOSPHATE [Concomitant]
     Dosage: 1.65MG PER DAY
  3. HEPARIN SODIUM [Concomitant]
     Dosage: 100IU PER DAY
  4. URSO 250 [Concomitant]

REACTIONS (2)
  - HEPATIC FUNCTION ABNORMAL [None]
  - NEUTROPENIA [None]
